FAERS Safety Report 7225784-9 (Version None)
Quarter: 2011Q1

REPORT INFORMATION
  Report Type: 
  Country: None (occurrence: None)
  Receive Date: 20110113
  Receipt Date: 20110105
  Transmission Date: 20110831
  Serious: Yes (Hospitalization, Other)
  Sender: FDA-Public Use
  Company Number: US-US-EMD SERONO, INC.-234406J08USA

PATIENT
  Sex: Female

DRUGS (3)
  1. ADVIL [Concomitant]
     Indication: PREMEDICATION
     Dates: end: 20070101
  2. REBIF [Suspect]
     Indication: MULTIPLE SCLEROSIS
     Route: 058
     Dates: start: 20050801, end: 20101201
  3. ADVIL [Concomitant]
     Indication: PAIN

REACTIONS (7)
  - INTESTINAL ULCER [None]
  - INJECTION SITE REACTION [None]
  - FEELING ABNORMAL [None]
  - EAR INFECTION [None]
  - DEHYDRATION [None]
  - INTESTINAL OBSTRUCTION [None]
  - CROHN'S DISEASE [None]
